FAERS Safety Report 24036327 (Version 1)
Quarter: 2024Q3

REPORT INFORMATION
  Report Type: Spontaneous
  Country: MY (occurrence: MY)
  Receive Date: 20240701
  Receipt Date: 20240701
  Transmission Date: 20241016
  Serious: Yes (Other)
  Sender: FRESENIUS KABI
  Company Number: MY-FreseniusKabi-FK202410058

PATIENT
  Age: 42 Year
  Sex: Female

DRUGS (1)
  1. PACLITAXEL [Suspect]
     Active Substance: PACLITAXEL
     Indication: Breast cancer
     Dosage: FORM OF ADMIN: INJECTION
     Route: 041

REACTIONS (3)
  - Seizure [Recovered/Resolved]
  - Gaze palsy [Recovered/Resolved]
  - Dyspnoea [Recovered/Resolved]
